APPROVED DRUG PRODUCT: MILTOWN
Active Ingredient: MEPROBAMATE
Strength: 200MG **Federal Register determination that product was not discontinued or withdrawn for safety or effectiveness reasons**
Dosage Form/Route: TABLET;ORAL
Application: N009698 | Product #004
Applicant: MEDPOINTE PHARMACEUTICALS MEDPOINTE HEALTHCARE INC
Approved: Approved Prior to Jan 1, 1982 | RLD: Yes | RS: No | Type: DISCN